FAERS Safety Report 4434605-9 (Version None)
Quarter: 2004Q3

REPORT INFORMATION
  Report Type: 
  Country: None (occurrence: None)
  Receive Date: 20040721
  Receipt Date: 20030715
  Transmission Date: 20050211
  Serious: Yes (Life-Threatening, Hospitalization, Other)
  Sender: FDA-Public Use
  Company Number: WAES 0307USA01974

PATIENT
  Age: 25 Year
  Sex: Male

DRUGS (5)
  1. VIOXX [Suspect]
     Indication: BACK PAIN
     Dosage: 25 MG, DAILY, PO
     Route: 048
     Dates: start: 20030624, end: 20030712
  2. VIOXX [Suspect]
     Indication: CHEST PAIN
     Dosage: 25 MG, DAILY, PO
     Route: 048
     Dates: start: 20030624, end: 20030712
  3. LORTAB [Concomitant]
  4. PERCOCET [Concomitant]
  5. SKELAXIN [Concomitant]

REACTIONS (1)
  - GASTROINTESTINAL HAEMORRHAGE [None]
